FAERS Safety Report 25346666 (Version 2)
Quarter: 2025Q2

REPORT INFORMATION
  Report Type: Spontaneous
  Country: CN (occurrence: CN)
  Receive Date: 20250522
  Receipt Date: 20250528
  Transmission Date: 20250717
  Serious: No
  Sender: MYLAN
  Company Number: CN-MYLANLABS-2025M1042965

PATIENT
  Age: 72 Year
  Sex: Male

DRUGS (3)
  1. LYRICA [Suspect]
     Active Substance: PREGABALIN
     Indication: Product used for unknown indication
     Dosage: 2 DOSAGE FORM, QD
  2. LYRICA [Suspect]
     Active Substance: PREGABALIN
     Dosage: 1 DOSAGE FORM, QD
  3. LYRICA [Suspect]
     Active Substance: PREGABALIN
     Dosage: 2 DOSAGE FORM, QD

REACTIONS (2)
  - Alanine aminotransferase increased [Unknown]
  - Drug ineffective [Unknown]
